FAERS Safety Report 5401243-0 (Version None)
Quarter: 2007Q3

REPORT INFORMATION
  Report Type: 
  Country: None (occurrence: None)
  Receive Date: 20070731
  Receipt Date: 20070716
  Transmission Date: 20080115
  Serious: Yes (Death, Other)
  Sender: FDA-Public Use
  Company Number: DE-AVENTIS-200214456DE

PATIENT
  Sex: Male
  Weight: 65 kg

DRUGS (2)
  1. RILUTEK [Suspect]
     Indication: PROGRESSIVE SUPRANUCLEAR PALSY
     Route: 048
     Dates: start: 20020301, end: 20020520
  2. ASPIRIN [Concomitant]
     Indication: CARDIOVASCULAR EVENT PROPHYLAXIS
     Route: 048
     Dates: end: 20020520

REACTIONS (4)
  - DEATH [None]
  - DEHYDRATION [None]
  - NAUSEA [None]
  - PULMONARY EMBOLISM [None]
